FAERS Safety Report 10010581 (Version 2)
Quarter: 2014Q1

REPORT INFORMATION
  Report Type: Report from Study
  Country: SA (occurrence: SA)
  Receive Date: 20140314
  Receipt Date: 20140325
  Transmission Date: 20141002
  Serious: Yes (Hospitalization)
  Sender: FDA-Public Use
  Company Number: SA-ROCHE-1361441

PATIENT
  Age: 32 Year
  Sex: Female

DRUGS (4)
  1. RIBAVIRIN [Suspect]
     Indication: HEPATITIS C
     Route: 048
     Dates: start: 20130708, end: 20140131
  2. PEG-INTERFERON ALFA 2A [Suspect]
     Indication: HEPATITIS C
     Route: 058
     Dates: start: 20130708, end: 20140131
  3. HEPARIN [Concomitant]
     Indication: HAEMORRHAGE
     Dosage: DOSE: 18 UNITS.
     Route: 042
     Dates: start: 20140127, end: 20140205
  4. WARFARIN [Concomitant]

REACTIONS (2)
  - Renal failure [Not Recovered/Not Resolved]
  - Lupus nephritis [Not Recovered/Not Resolved]
